FAERS Safety Report 23216774 (Version 2)
Quarter: 2023Q4

REPORT INFORMATION
  Report Type: Other
  Country: US (occurrence: None)
  Receive Date: 20231122
  Receipt Date: 20231123
  Transmission Date: 20240110
  Serious: Yes (Death)
  Sender: FDA-Public Use
  Company Number: US-ROCHE-3460351

PATIENT
  Age: 73 Year
  Sex: Female

DRUGS (5)
  1. POLIVY [Suspect]
     Active Substance: POLATUZUMAB VEDOTIN-PIIQ
     Indication: Diffuse large B-cell lymphoma
     Dosage: INFUSE 1.4MG/KG (114MG) INTRAVENOUSLY EVERY 3 WEEK(S)
     Route: 042
  2. POLIVY [Suspect]
     Active Substance: POLATUZUMAB VEDOTIN-PIIQ
     Route: 042
  3. RITUXAN [Suspect]
     Active Substance: RITUXIMAB
     Indication: Product used for unknown indication
     Dosage: INFUSE 700MG INTRAVENOUSLY EVERY 21 DAY(S), 50 ML
     Route: 042
  4. RITUXAN [Suspect]
     Active Substance: RITUXIMAB
     Dosage: 10ML
     Route: 042
  5. RITUXAN [Suspect]
     Active Substance: RITUXIMAB
     Route: 042

REACTIONS (1)
  - Death [Fatal]

NARRATIVE: CASE EVENT DATE: 20231116
